FAERS Safety Report 4390081-6 (Version None)
Quarter: 2004Q3

REPORT INFORMATION
  Report Type: 
  Country: None (occurrence: None)
  Receive Date: 20040706
  Receipt Date: 20040531
  Transmission Date: 20050211
  Serious: Yes (Hospitalization)
  Sender: FDA-Public Use
  Company Number: JP-BRISTOL-MYERS SQUIBB COMPANY-12601571

PATIENT
  Age: 42 Year
  Sex: Female

DRUGS (7)
  1. MAXIPIME [Suspect]
     Indication: PNEUMONIA
     Route: 042
     Dates: start: 20040315
  2. DILTIAZEM HCL [Suspect]
     Indication: PRINZMETAL ANGINA
     Route: 048
     Dates: start: 20040301, end: 20040317
  3. LOXOPROFEN SODIUM [Suspect]
     Indication: PAIN
     Route: 048
  4. ISOSORBIDE DINITRATE [Suspect]
     Indication: PRINZMETAL ANGINA
     Route: 048
     Dates: start: 20040301, end: 20040317
  5. CANDESARTAN CILEXETIL [Suspect]
     Indication: PRINZMETAL ANGINA
     Route: 048
     Dates: start: 20040301, end: 20040317
  6. PIPERACILLIN SODIUM [Suspect]
     Indication: PNEUMONIA
     Route: 042
     Dates: start: 20040312, end: 20040313
  7. FLOMOXEF SODIUM [Suspect]
     Indication: PNEUMONIA
     Route: 042
     Dates: start: 20040314

REACTIONS (1)
  - STEVENS-JOHNSON SYNDROME [None]
